FAERS Safety Report 5084639-9 (Version None)
Quarter: 2006Q3

REPORT INFORMATION
  Report Type: 
  Country: None (occurrence: None)
  Receive Date: 20060821
  Receipt Date: 20060728
  Transmission Date: 20061208
  Serious: Yes (Other)
  Sender: FDA-Public Use
  Company Number: HK-ROCHE-457188

PATIENT
  Age: 30 Year
  Sex: Male

DRUGS (1)
  1. PEGASYS [Suspect]
     Indication: HEPATITIS B
     Dosage: ROUTE REPORTED AS INJECTION. FORM REPORTED AS PFS.
     Route: 050
     Dates: start: 20060707, end: 20060707

REACTIONS (2)
  - ERYTHEMA [None]
  - PRURITUS [None]
